FAERS Safety Report 5147638-4 (Version None)
Quarter: 2006Q4

REPORT INFORMATION
  Report Type: 
  Country: None (occurrence: None)
  Receive Date: 20061108
  Receipt Date: 20061108
  Transmission Date: 20070319
  Serious: Yes (Life-Threatening, Hospitalization)
  Sender: FDA-Public Use
  Company Number: None

PATIENT
  Age: 58 Year
  Sex: Male
  Weight: 124.7392 kg

DRUGS (13)
  1. LIPITOR [Suspect]
     Indication: HYPERLIPIDAEMIA
     Dosage: 40MG ONCE DAILY PO
     Route: 048
     Dates: start: 20020503, end: 20031027
  2. ZOCOR [Suspect]
     Indication: HYPERLIPIDAEMIA
     Dosage: 80MG ONCE DAILY PO
     Route: 048
     Dates: start: 20031029
  3. ALLOPURINOL [Concomitant]
  4. ATENOLOL [Concomitant]
  5. BUMEX [Concomitant]
  6. CATAPRES [Concomitant]
  7. COLCHICINE [Concomitant]
  8. LANTUS [Concomitant]
  9. NEURONTIN [Concomitant]
  10. PLAVIX [Concomitant]
  11. PLENDIL [Concomitant]
  12. PRINIVIL [Concomitant]
  13. TRIAMCINOLONE [Concomitant]

REACTIONS (2)
  - PAIN IN EXTREMITY [None]
  - RESPIRATORY FAILURE [None]
